FAERS Safety Report 23101720 (Version 2)
Quarter: 2023Q4

REPORT INFORMATION
  Report Type: Spontaneous
  Country: LU (occurrence: LU)
  Receive Date: 20231025
  Receipt Date: 20231103
  Transmission Date: 20240110
  Serious: Yes (Hospitalization, Other)
  Sender: FDA-Public Use
  Company Number: LU-ALMPS-202304113

PATIENT
  Sex: Female

DRUGS (13)
  1. ACETAMINOPHEN [Suspect]
     Active Substance: ACETAMINOPHEN
     Indication: Product used for unknown indication
     Dosage: 3 GRAM, ONCE A DAY
     Route: 048
     Dates: start: 20230917, end: 20230918
  2. ACETAMINOPHEN [Suspect]
     Active Substance: ACETAMINOPHEN
     Dosage: 1 GRAM, ONCE A DAY
     Route: 048
     Dates: start: 20230919, end: 20230919
  3. PROTHIPENDYL HYDROCHLORIDE [Suspect]
     Active Substance: PROTHIPENDYL HYDROCHLORIDE
     Indication: Product used for unknown indication
     Dosage: 80 MILLIGRAM, ONCE A DAY
     Route: 048
     Dates: start: 20230826, end: 20230918
  4. LIPITOR [Interacting]
     Active Substance: ATORVASTATIN CALCIUM
     Indication: Product used for unknown indication
     Dosage: 40 MILLIGRAM, TWO TIMES A DAY
     Route: 048
     Dates: start: 20230822, end: 20230917
  5. PREGABALIN [Suspect]
     Active Substance: PREGABALIN
     Indication: Product used for unknown indication
     Dosage: 25 MILLIGRAM, TWO TIMES A DAY
     Route: 048
     Dates: start: 20230822, end: 20230918
  6. RISPERDAL [Suspect]
     Active Substance: RISPERIDONE
     Indication: Product used for unknown indication
     Dosage: 6 MILLILITER, ONCE A DAY
     Route: 048
     Dates: start: 20230822, end: 20230918
  7. NOVALGIN (METAMIZOLE SODIUM) [Suspect]
     Active Substance: METAMIZOLE SODIUM
     Indication: Product used for unknown indication
     Dosage: 1 GRAM, ONCE A DAY
     Route: 042
     Dates: start: 20230917, end: 20230917
  8. PAXLOVID [Suspect]
     Active Substance: NIRMATRELVIR\RITONAVIR
     Indication: COVID-19
     Dosage: 1 DOSAGE FORM, TOTAL
     Route: 048
     Dates: start: 20230917, end: 20230917
  9. ENOXAPARIN [Concomitant]
     Active Substance: ENOXAPARIN
     Indication: Product used for unknown indication
     Dosage: 40 MILLIGRAM, ONCE A DAY
     Route: 058
  10. ESOMEPRAZOLE [Concomitant]
     Active Substance: ESOMEPRAZOLE
     Indication: Product used for unknown indication
     Dosage: 20 MILLIGRAM, ONCE A DAY
     Route: 048
  11. ASPIRIN [Concomitant]
     Active Substance: ASPIRIN
     Indication: Product used for unknown indication
     Dosage: 80 MILLIGRAM, ONCE A DAY
     Route: 048
  12. LEVOTHYROXINE [Concomitant]
     Active Substance: LEVOTHYROXINE
     Indication: Product used for unknown indication
     Dosage: 50 MICROGRAM, ONCE A DAY
     Route: 048
  13. FLUPENTIXOL DIHYDROCHLORIDE\MELITRACEN HYDROCHLORIDE [Concomitant]
     Active Substance: FLUPENTIXOL DIHYDROCHLORIDE\MELITRACEN HYDROCHLORIDE
     Indication: Product used for unknown indication
     Dosage: 1 DOSAGE FORM, ONCE A DAY
     Route: 048

REACTIONS (5)
  - Acute kidney injury [Recovering/Resolving]
  - Thrombocytopenia [Unknown]
  - Hepatic cytolysis [Recovered/Resolved]
  - Drug interaction [Recovered/Resolved]
  - Contraindicated product administered [Recovered/Resolved]

NARRATIVE: CASE EVENT DATE: 20230917
